FAERS Safety Report 25006021 (Version 3)
Quarter: 2025Q4

REPORT INFORMATION
  Report Type: Spontaneous
  Country: EU (occurrence: EU)
  Receive Date: 20250224
  Receipt Date: 20251026
  Transmission Date: 20260118
  Serious: Yes (Other)
  Sender: IPSEN BIOPHARMACEUTICALS, INC.
  Company Number: EU-IPSEN Group, Research and Development-2025-01220

PATIENT
  Age: 65 Year
  Sex: Female
  Weight: 79 kg

DRUGS (20)
  1. IQIRVO [Suspect]
     Active Substance: ELAFIBRANOR
     Indication: Primary biliary cholangitis
     Dosage: 80 MG DAILY
     Route: 048
     Dates: start: 20241206, end: 20250113
  2. UDCAL [Concomitant]
     Dosage: 2 CAPSULES 3 TIMES A DAY
  3. ASPIRIN [Concomitant]
     Active Substance: ASPIRIN
     Dosage: 0-1-0-0, ONGOING
  4. INSULIN GLARGINE [Concomitant]
     Active Substance: INSULIN GLARGINE
     Dosage: 0-0-16-0, ONGOING
  5. HUMALOG [Concomitant]
     Active Substance: INSULIN LISPRO
     Dosage: ACCORDING TO PLAN, ONGOING
  6. DAPAGLIFLOZIN [Concomitant]
     Active Substance: DAPAGLIFLOZIN
     Dosage: 1-0-0-0, ONGOING
  7. RAMIPRIL [Concomitant]
     Active Substance: RAMIPRIL
     Dosage: 1-0-0-0
  8. AMLODIPINE AAA [Concomitant]
     Dosage: 0-0-0-1
  9. METOPROLOL SUCCINATE [Concomitant]
     Active Substance: METOPROLOL SUCCINATE
     Dosage: 1-0-1-0 9TWO TABLETS DAILY)
  10. PANTOPRAZOLE [Concomitant]
     Active Substance: PANTOPRAZOLE
     Dosage: 1-0-1-0
  11. ALLOPURINOL [Concomitant]
     Active Substance: ALLOPURINOL
     Dosage: 0-0-1-0
  12. METAMIZOLE [Concomitant]
     Active Substance: METAMIZOLE
     Indication: Pain
     Dosage: IN CASE OF PAIN UPTO 4X 1/DAY
  13. CHOLECALCIFEROL [Concomitant]
     Active Substance: CHOLECALCIFEROL
     Dosage: 20, 000 I. E. EVERY TUESDAY
  14. REPATHA [Concomitant]
     Active Substance: EVOLOCUMAB
     Dosage: INJECTION SOLUTION IN A READY-TO-USE PEN
     Route: 058
  15. GABAPENTIN [Concomitant]
     Active Substance: GABAPENTIN
     Indication: Pruritus
     Dosage: 1-0-1-0
  16. FUROSEMIDE [Concomitant]
     Active Substance: FUROSEMIDE
     Dosage: 1-1-0-0 (TWO TABLETS DAILY)
  17. SPIRONOLACTONE [Concomitant]
     Active Substance: SPIRONOLACTONE
     Dosage: 1-0-0-0
  18. ACITRETIN [Concomitant]
     Active Substance: ACITRETIN
  19. SODIUM BICARBONATE [Concomitant]
     Active Substance: SODIUM BICARBONATE
     Dosage: AS AN ALTERNATIVE TO NEPHROTRANS
  20. DESLORATADINE [Concomitant]
     Active Substance: DESLORATADINE
     Dosage: 1-0-1-0

REACTIONS (2)
  - Blood creatine phosphokinase increased [Unknown]
  - Gamma-glutamyltransferase increased [Unknown]

NARRATIVE: CASE EVENT DATE: 20250103
